FAERS Safety Report 5743428-X (Version None)
Quarter: 2008Q2

REPORT INFORMATION
  Report Type: 
  Country: None (occurrence: None)
  Receive Date: 20080519
  Receipt Date: 20080519
  Transmission Date: 20081010
  Serious: Yes (Hospitalization)
  Sender: FDA-Public Use
  Company Number: None

PATIENT
  Age: 74 Year
  Sex: Male
  Weight: 79.8 kg

DRUGS (2)
  1. GEMCITABINE [Suspect]
     Indication: BLADDER CANCER
     Dosage: 1000 MG/M**2 CYC
     Dates: start: 20080501, end: 20080501
  2. CISPLATIN [Suspect]
     Indication: BLADDER CANCER
     Dosage: 70 MG/M**2
     Dates: start: 20080501, end: 20080501

REACTIONS (1)
  - SYNCOPE [None]
